FAERS Safety Report 7376831-5 (Version None)
Quarter: 2011Q1

REPORT INFORMATION
  Report Type: 
  Country: None (occurrence: None)
  Receive Date: 20110325
  Receipt Date: 20110318
  Transmission Date: 20110831
  Serious: Yes (Disabling)
  Sender: FDA-Public Use
  Company Number: GB-MERCK-1103GBR00089

PATIENT
  Age: 54 Year
  Sex: Female
  Weight: 108 kg

DRUGS (4)
  1. LEVOTHYROXINE SODIUM [Concomitant]
     Route: 065
  2. JANUVIA [Suspect]
     Indication: TYPE 2 DIABETES MELLITUS
     Route: 048
     Dates: start: 20110105, end: 20110214
  3. METFORMIN [Concomitant]
     Route: 065
  4. SIMVASTATIN [Concomitant]
     Route: 048

REACTIONS (6)
  - FATIGUE [None]
  - FEELING ABNORMAL [None]
  - DEPRESSED MOOD [None]
  - DIZZINESS [None]
  - DISTURBANCE IN ATTENTION [None]
  - PANIC ATTACK [None]
